FAERS Safety Report 18129596 (Version 1)
Quarter: 2020Q3

REPORT INFORMATION
  Report Type: Spontaneous
  Country: US (occurrence: US)
  Receive Date: 20200810
  Receipt Date: 20200810
  Transmission Date: 20201103
  Serious: No
  Sender: FDA-Public Use
  Company Number: US-PERRIGO-19US009779

PATIENT
  Sex: Male

DRUGS (4)
  1. LORATADINE. [Suspect]
     Active Substance: LORATADINE
     Indication: COUGH
     Dosage: UNKNOWN, UNKNOWN
     Route: 048
     Dates: start: 201907
  2. MOTRIN [Suspect]
     Active Substance: IBUPROFEN
     Indication: VIRAL INFECTION
  3. LORATADINE. [Suspect]
     Active Substance: LORATADINE
     Indication: VIRAL INFECTION
  4. MOTRIN [Suspect]
     Active Substance: IBUPROFEN
     Indication: COUGH
     Dosage: UNKNOWN, UNKNOWN
     Route: 065
     Dates: start: 201907

REACTIONS (3)
  - Off label use [Unknown]
  - Rash [Not Recovered/Not Resolved]
  - Lip swelling [Not Recovered/Not Resolved]

NARRATIVE: CASE EVENT DATE: 201907
